FAERS Safety Report 8773340 (Version 2)
Quarter: 2013Q1

REPORT INFORMATION
  Report Type: Report from Study
  Country: US (occurrence: US)
  Receive Date: 20120907
  Receipt Date: 20130130
  Transmission Date: 20140127
  Serious: Yes (Hospitalization, Other)
  Sender: FDA-Public Use
  Company Number: US-NAPPMUNDI-USA-2012-0092312

PATIENT
  Sex: Male

DRUGS (1)
  1. OXYCONTIN (NDA 22-272) [Suspect]
     Indication: PRODUCT USED FOR UNKNOWN INDICATION
     Dosage: 160 MG, BID
     Route: 048

REACTIONS (3)
  - Intervertebral disc degeneration [Not Recovered/Not Resolved]
  - Spinal cord disorder [Unknown]
  - Neck surgery [Recovered/Resolved]
